FAERS Safety Report 8173335-7 (Version None)
Quarter: 2012Q1

REPORT INFORMATION
  Report Type: 
  Country: None (occurrence: None)
  Receive Date: 20120104
  Receipt Date: 20111206
  Transmission Date: 20120608
  Serious: No
  Sender: FDA-Public Use
  Company Number: 2011HGS-002689

PATIENT
  Age: 52 Year
  Sex: Female
  Weight: 58.0604 kg

DRUGS (8)
  1. ULTRACET (ULTRACET) (PARACETAMOL, TRAMADOL HYDROCHLORIDE) [Concomitant]
  2. METHOTREXATE [Concomitant]
  3. PREDNISONE [Concomitant]
  4. PLAVIX [Concomitant]
  5. NEURONTIN [Concomitant]
  6. AMLODIPINE [Concomitant]
  7. PLAQUENIL (HYDROCXYCHLOROQUINE SULFATE) (HYDROXYCHLOROQUINE SULFATE) [Concomitant]
  8. BENLYSTA [Suspect]
     Indication: SYSTEMIC LUPUS ERYTHEMATOSUS
     Dosage: 600 MG, 1 IN 2 WK, INTRAVENOUS DRIP
     Route: 041
     Dates: start: 20110613

REACTIONS (1)
  - DRUG INEFFECTIVE [None]
